FAERS Safety Report 6964017-5 (Version None)
Quarter: 2010Q3

REPORT INFORMATION
  Report Type: 
  Country: None (occurrence: None)
  Receive Date: 20100902
  Receipt Date: 20100902
  Transmission Date: 20110219
  Serious: Yes (Other)
  Sender: FDA-Public Use
  Company Number: None

PATIENT
  Age: 72 Year
  Sex: Male
  Weight: 81.6475 kg

DRUGS (1)
  1. GENTAK [Suspect]
     Indication: INFECTION PROPHYLAXIS
     Dosage: APPLY TO SUTURES QID TOP, 24 HRS/SUTURES, 3 HRS
     Route: 061
     Dates: start: 20100830, end: 20100831

REACTIONS (1)
  - HALLUCINATION, VISUAL [None]
